FAERS Safety Report 7580856-4 (Version None)
Quarter: 2011Q2

REPORT INFORMATION
  Report Type: 
  Country: None (occurrence: None)
  Receive Date: 20110622
  Receipt Date: 20110607
  Transmission Date: 20111010
  Serious: Yes (Death)
  Sender: FDA-Public Use
  Company Number: 2011MA006894

PATIENT
  Age: 19 Year
  Sex: Male

DRUGS (1)
  1. CARBIDOPA AND LEVODOPA [Suspect]
     Indication: PARKINSON'S DISEASE

REACTIONS (9)
  - IMMOBILE [None]
  - DYSTONIA [None]
  - ACTIVITIES OF DAILY LIVING IMPAIRED [None]
  - HYPERSEXUALITY [None]
  - DYSKINESIA [None]
  - ANGER [None]
  - CSF TEST ABNORMAL [None]
  - RESPIRATORY DISTRESS [None]
  - MUSCLE RIGIDITY [None]
